FAERS Safety Report 8328057-6 (Version None)
Quarter: 2012Q2

REPORT INFORMATION
  Report Type: 
  Country: None (occurrence: None)
  Receive Date: 20120502
  Receipt Date: 20120423
  Transmission Date: 20120825
  Serious: Yes (Other)
  Sender: FDA-Public Use
  Company Number: PHFR2012GB002511

PATIENT
  Sex: Male

DRUGS (2)
  1. CLOZARIL [Suspect]
     Indication: SCHIZOPHRENIA
     Route: 048
     Dates: start: 20120416
  2. CLOZARIL [Suspect]
     Dosage: 112.5 MG, (50 MG AM AND 62.5 MG TONIGHT)

REACTIONS (2)
  - BLOOD PRESSURE FLUCTUATION [None]
  - MALAISE [None]
